FAERS Safety Report 11360569 (Version 2)
Quarter: 2015Q4

REPORT INFORMATION
  Report Type: Report from Study
  Country: US (occurrence: US)
  Receive Date: 20150810
  Receipt Date: 20151005
  Transmission Date: 20160304
  Serious: No
  Sender: FDA-Public Use
  Company Number: PHEH2015US010930

PATIENT
  Sex: Female

DRUGS (6)
  1. PROZAC [Concomitant]
     Active Substance: FLUOXETINE HYDROCHLORIDE
     Indication: PRODUCT USED FOR UNKNOWN INDICATION
     Route: 065
  2. EXTAVIA [Suspect]
     Active Substance: INTERFERON BETA-1B
     Dosage: 0.5 ML, QOD WEEKS 3-4
     Route: 058
  3. EXTAVIA [Suspect]
     Active Substance: INTERFERON BETA-1B
     Indication: MULTIPLE SCLEROSIS
     Dosage: 0.25 MG, QOD
     Route: 058
  4. EXTAVIA [Suspect]
     Active Substance: INTERFERON BETA-1B
     Dosage: 0.75 ML, QOD WEEKS 5-6
     Route: 058
  5. EXTAVIA [Suspect]
     Active Substance: INTERFERON BETA-1B
     Dosage: 1 ML, QOD WEEKS 7+
     Route: 058
  6. EXTAVIA [Suspect]
     Active Substance: INTERFERON BETA-1B
     Dosage: 0.25 ML, QOD WEEKS 1-2
     Route: 058
     Dates: start: 201405

REACTIONS (6)
  - Eye movement disorder [Recovered/Resolved]
  - Confusional state [Recovered/Resolved]
  - Balance disorder [Recovered/Resolved]
  - Urinary tract infection [Recovered/Resolved]
  - Head discomfort [Unknown]
  - Heart rate increased [Recovered/Resolved]
